FAERS Safety Report 5898745-X (Version None)
Quarter: 2008Q3

REPORT INFORMATION
  Report Type: 
  Country: None (occurrence: None)
  Receive Date: 20080925
  Receipt Date: 20080801
  Transmission Date: 20090109
  Serious: No
  Sender: FDA-Public Use
  Company Number: A0728805A

PATIENT
  Age: 42 Year
  Sex: Female

DRUGS (4)
  1. WELLBUTRIN XL [Suspect]
     Dosage: 300MG TWICE PER DAY
     Route: 048
     Dates: start: 20070101, end: 20080301
  2. WELLBUTRIN [Suspect]
     Indication: DRUG USE FOR UNKNOWN INDICATION
     Route: 048
  3. ADVAIR DISKUS 100/50 [Concomitant]
  4. ALBUTEROL [Concomitant]

REACTIONS (3)
  - DRUG HYPERSENSITIVITY [None]
  - RASH [None]
  - URTICARIA [None]
